FAERS Safety Report 4578101-7 (Version None)
Quarter: 2005Q1

REPORT INFORMATION
  Report Type: 
  Country: None (occurrence: None)
  Receive Date: 20050202
  Receipt Date: 20050202
  Transmission Date: 20050727
  Serious: Yes (Hospitalization)
  Sender: FDA-Public Use
  Company Number: None

PATIENT
  Sex: Female

DRUGS (2)
  1. CLONAZEPAM [Suspect]
     Indication: HYPOXIC ENCEPHALOPATHY
     Dosage: 0.5 MG 1/2 TAB BID PO
     Route: 048
  2. CLONAZEPAM [Suspect]
     Indication: MYOCLONUS
     Dosage: 0.5 MG 1/2 TAB BID PO
     Route: 048

REACTIONS (3)
  - FALL [None]
  - PHARMACEUTICAL PRODUCT COMPLAINT [None]
  - SIMPLE PARTIAL SEIZURES [None]
